FAERS Safety Report 13896331 (Version 1)
Quarter: 2017Q3

REPORT INFORMATION
  Report Type: Spontaneous
  Country: US (occurrence: US)
  Receive Date: 20170823
  Receipt Date: 20170823
  Transmission Date: 20171127
  Serious: No
  Sender: FDA-Public Use
  Company Number: GXBR2017US002202

PATIENT
  Sex: Female

DRUGS (1)
  1. TRIAMTERENE AND HYDROCHLOROTHIAZIDE [Suspect]
     Active Substance: HYDROCHLOROTHIAZIDE\TRIAMTERENE
     Indication: PRODUCT USED FOR UNKNOWN INDICATION
     Route: 065

REACTIONS (7)
  - Lip swelling [Unknown]
  - Pruritus [Unknown]
  - Peripheral swelling [Unknown]
  - Eyelid oedema [Unknown]
  - Erythema [Unknown]
  - Paraesthesia oral [Unknown]
  - Hypoaesthesia [Unknown]
